FAERS Safety Report 9368929 (Version 2)
Quarter: 2013Q2

REPORT INFORMATION
  Report Type: Spontaneous
  Country: US (occurrence: None)
  Receive Date: 20130624
  Receipt Date: 20130627
  Transmission Date: 20140414
  Serious: Yes (Death, Other)
  Sender: FDA-Public Use
  Company Number: USA/USA/13/0030034

PATIENT
  Sex: Female

DRUGS (1)
  1. OMEPRAZOLE DELAYED RELEASE CAPSULES 20MG (OMEPRAZOLE) [Suspect]
     Indication: PRODUCT USED FOR UNKNOWN INDICATION
     Dosage: UNKNOWN

REACTIONS (1)
  - Vomiting [None]
